FAERS Safety Report 19858462 (Version 1)
Quarter: 2021Q3

REPORT INFORMATION
  Report Type: Other
  Country: US (occurrence: US)
  Receive Date: 20210921
  Receipt Date: 20210921
  Transmission Date: 20211014
  Serious: Yes (Other)
  Sender: FDA-Public Use
  Company Number: US-INTERCEPT-PM2021002742

PATIENT
  Sex: Male

DRUGS (11)
  1. URSODIOL. [Concomitant]
     Active Substance: URSODIOL
     Indication: PRIMARY BILIARY CHOLANGITIS
     Dosage: 300 MG, BID
     Dates: start: 2013
  2. FLUPHENAZINE HCL [Concomitant]
     Active Substance: FLUPHENAZINE HYDROCHLORIDE
     Indication: ANTIPSYCHOTIC DRUG LEVEL
     Dosage: UNK
     Dates: start: 2013
  3. MODERNA COVID?19 VACCINE [Concomitant]
     Active Substance: CX-024414
     Dosage: UNK
  4. OCALIVA [Suspect]
     Active Substance: OBETICHOLIC ACID
     Indication: PRIMARY BILIARY CHOLANGITIS
     Dosage: 5 MG, QD
     Route: 048
     Dates: start: 20191106
  5. PRAVASTATIN SODIUM. [Concomitant]
     Active Substance: PRAVASTATIN SODIUM
     Indication: HYPERLIPIDAEMIA
     Dosage: 30 MG, UNK
     Dates: start: 2013
  6. METFORMIN HCL [Concomitant]
     Active Substance: METFORMIN HYDROCHLORIDE
     Indication: DIABETES MELLITUS
     Dosage: UNK
     Dates: start: 2013
  7. CALCIUM [Concomitant]
     Active Substance: CALCIUM
  8. METAMUCIL [Concomitant]
     Active Substance: PLANTAGO SEED
     Dosage: UNK
  9. MAGNESIUM [Concomitant]
     Active Substance: MAGNESIUM
  10. BENZTROPINE MESYLATE. [Concomitant]
     Active Substance: BENZTROPINE MESYLATE
     Indication: TREMOR
     Dosage: UNK
     Dates: start: 2013
  11. ZINC. [Concomitant]
     Active Substance: ZINC

REACTIONS (5)
  - Fatigue [Not Recovered/Not Resolved]
  - Cholangitis [Not Recovered/Not Resolved]
  - Hepatic pain [Not Recovered/Not Resolved]
  - Constipation [Not Recovered/Not Resolved]
  - Hepatic steatosis [Not Recovered/Not Resolved]
